FAERS Safety Report 5638987-1 (Version None)
Quarter: 2008Q1

REPORT INFORMATION
  Report Type: 
  Country: None (occurrence: None)
  Receive Date: 20080225
  Receipt Date: 20080225
  Transmission Date: 20080703
  Serious: Yes (Hospitalization)
  Sender: FDA-Public Use
  Company Number: None

PATIENT
  Sex: Female
  Weight: 13.6 kg

DRUGS (5)
  1. CYTARABINE [Suspect]
     Dosage: 70 MG
  2. DEXAMETHASONE TAB [Suspect]
     Dosage: 30 MG
  3. METHOTREXATE [Suspect]
     Dosage: 12 MG
  4. PEG-L- ASPARAGINASE (K-H) [Suspect]
     Dosage: 1650 IU
  5. VINCRISTINE SULFATE [Suspect]
     Dosage: 1 MG

REACTIONS (12)
  - ANOXIC ENCEPHALOPATHY [None]
  - BACILLUS INFECTION [None]
  - BACTERAEMIA [None]
  - BRAIN DEATH [None]
  - BRAIN OEDEMA [None]
  - CEREBROVASCULAR ACCIDENT [None]
  - ENCEPHALOPATHY [None]
  - POSTURING [None]
  - PUPIL FIXED [None]
  - STARING [None]
  - STATUS EPILEPTICUS [None]
  - SUBARACHNOID HAEMORRHAGE [None]
